FAERS Safety Report 13453515 (Version 1)
Quarter: 2017Q2

REPORT INFORMATION
  Report Type: Spontaneous
  Country: US (occurrence: US)
  Receive Date: 20170418
  Receipt Date: 20170418
  Transmission Date: 20170830
  Serious: No
  Sender: FDA-Public Use
  Company Number: US-ALLERGAN-1664313US

PATIENT
  Sex: Male

DRUGS (1)
  1. LATISSE [Suspect]
     Active Substance: BIMATOPROST
     Indication: PRODUCT USED FOR UNKNOWN INDICATION
     Dosage: 4 GTT, UNK
     Route: 047

REACTIONS (4)
  - Eye irritation [Unknown]
  - Medication error [Unknown]
  - Eye pruritus [Unknown]
  - Abnormal sensation in eye [Unknown]
